FAERS Safety Report 13298388 (Version 1)
Quarter: 2017Q1

REPORT INFORMATION
  Report Type: Spontaneous
  Country: JP (occurrence: JP)
  Receive Date: 20170306
  Receipt Date: 20170306
  Transmission Date: 20170428
  Serious: Yes (Hospitalization)
  Sender: FDA-Public Use
  Company Number: JP-LANNETT COMPANY, INC.-JP-2017LAN000611

PATIENT
  Age: 43 Year
  Sex: Female

DRUGS (1)
  1. SUMATRIPTAN. [Suspect]
     Active Substance: SUMATRIPTAN
     Indication: HEADACHE
     Dosage: UNK, TABLET
     Route: 048

REACTIONS (10)
  - Reversible cerebral vasoconstriction syndrome [Recovered/Resolved]
  - Headache [Recovered/Resolved]
  - Central nervous system lesion [Recovered/Resolved]
  - Traumatic haematoma [Recovered/Resolved]
  - Fall [Recovered/Resolved]
  - Blood pressure systolic increased [Recovered/Resolved]
  - Posterior reversible encephalopathy syndrome [Recovered/Resolved]
  - Epilepsy [Recovered/Resolved]
  - Subarachnoid haemorrhage [Recovered/Resolved]
  - Cerebral vasoconstriction [Recovered/Resolved]
